FAERS Safety Report 8538713-2 (Version None)
Quarter: 2012Q3

REPORT INFORMATION
  Report Type: 
  Country: None (occurrence: None)
  Receive Date: 20120726
  Receipt Date: 20120712
  Transmission Date: 20120928
  Serious: Yes (Hospitalization)
  Sender: FDA-Public Use
  Company Number: DE-CELGENEUS-062-21660-12040193

PATIENT
  Age: 76 Year
  Sex: Female
  Weight: 65 kg

DRUGS (3)
  1. CAPECITABINE [Suspect]
     Indication: BREAST CANCER
     Route: 048
     Dates: start: 20120314, end: 20120327
  2. ABRAXANE [Suspect]
     Indication: BREAST CANCER
     Route: 041
     Dates: start: 20120314, end: 20120328
  3. NEULASTA [Concomitant]
     Route: 065
     Dates: start: 20120329, end: 20120329

REACTIONS (2)
  - FEBRILE NEUTROPENIA [None]
  - DIARRHOEA [None]
